FAERS Safety Report 21552116 (Version 1)
Quarter: 2022Q4

REPORT INFORMATION
  Report Type: Spontaneous
  Country: PL (occurrence: PL)
  Receive Date: 20221104
  Receipt Date: 20221104
  Transmission Date: 20230113
  Serious: Yes (Other)
  Sender: FDA-Public Use
  Company Number: PL-TAKEDA-2022TUS080269

PATIENT
  Age: 33 Year
  Sex: Male

DRUGS (28)
  1. KIOVIG [Suspect]
     Active Substance: HUMAN IMMUNOGLOBULIN G
     Indication: Pneumonia
     Dosage: UNK
     Route: 042
     Dates: start: 20180416, end: 20180510
  2. BROMHEXINE HYDROCHLORIDE [Concomitant]
     Active Substance: BROMHEXINE HYDROCHLORIDE
     Indication: Pneumonia
     Dosage: UNK
     Route: 065
     Dates: start: 20180416, end: 20180510
  3. Calperos [Concomitant]
     Indication: Pneumonia
     Dosage: UNK
     Route: 065
     Dates: start: 20180416, end: 20180510
  4. HEPAREGEN [Concomitant]
     Indication: Pneumonia
     Dosage: UNK
     Route: 065
     Dates: start: 20180416, end: 20180510
  5. ACETAMINOPHEN [Concomitant]
     Active Substance: ACETAMINOPHEN
     Indication: Pneumonia
     Dosage: 1 GRAM
     Route: 042
     Dates: start: 20180416, end: 20180510
  6. Proxacin [Concomitant]
     Indication: Pneumonia
     Dosage: UNK
     Route: 042
     Dates: start: 20180416, end: 20180510
  7. TRANEXAMIC ACID [Concomitant]
     Active Substance: TRANEXAMIC ACID
     Indication: Pneumonia
     Dosage: UNK
     Route: 042
     Dates: start: 20180416, end: 20180510
  8. SODIUM CHLORIDE [Concomitant]
     Active Substance: SODIUM CHLORIDE
     Indication: Pneumonia
     Dosage: UNK
     Route: 065
     Dates: start: 20180416, end: 20180510
  9. DOXEPIN [Concomitant]
     Active Substance: DOXEPIN
     Indication: Pneumonia
     Dosage: UNK
     Route: 065
     Dates: start: 20180416, end: 20180510
  10. ATRODIL [Concomitant]
     Indication: Pneumonia
     Dosage: 20 MICROGRAM
     Route: 050
     Dates: start: 20180416, end: 20180510
  11. ETHAMSYLATE [Concomitant]
     Active Substance: ETHAMSYLATE
     Indication: Pneumonia
     Dosage: UNK
     Route: 065
     Dates: start: 20180416, end: 20180510
  12. SODIUM CHLORIDE [Concomitant]
     Active Substance: SODIUM CHLORIDE
     Indication: Pneumonia
     Dosage: 9 MILLIGRAM PER MILLILITRE
     Route: 065
     Dates: start: 20180416, end: 20180510
  13. RESOURCE 2.0 [Concomitant]
     Indication: Pneumonia
     Dosage: 200 MILLILITER
     Route: 065
     Dates: start: 20180416, end: 20180510
  14. FLUCONAZOLE [Concomitant]
     Active Substance: FLUCONAZOLE
     Indication: Pneumonia
     Dosage: UNK
     Route: 065
     Dates: start: 20180416, end: 20180510
  15. DIETARY SUPPLEMENT [Concomitant]
     Active Substance: DIETARY SUPPLEMENT
     Indication: Pneumonia
     Dosage: 1 DOSAGE FORM
     Route: 065
     Dates: start: 20180416, end: 20180510
  16. PANTOPRAL [Concomitant]
     Indication: Pneumonia
     Dosage: UNK
     Route: 065
     Dates: start: 20180416, end: 20180510
  17. CIPROFLOXACIN [Concomitant]
     Active Substance: CIPROFLOXACIN
     Indication: Pneumonia
     Dosage: UNK
     Route: 042
     Dates: start: 20180416, end: 20180510
  18. DEXTROSE [Concomitant]
     Active Substance: DEXTROSE
     Indication: Pneumonia
     Dosage: UNK
     Route: 042
     Dates: start: 20180416, end: 20180510
  19. ENOXAPARIN SODIUM [Concomitant]
     Active Substance: ENOXAPARIN SODIUM
     Indication: Pneumonia
     Dosage: UNK
     Route: 023
     Dates: start: 20180416, end: 20180510
  20. ATROVENT [Concomitant]
     Active Substance: IPRATROPIUM BROMIDE
     Indication: Pneumonia
     Dosage: UNK
     Route: 050
     Dates: start: 20180416, end: 20180510
  21. BUDEZONID LEK AM [Concomitant]
     Indication: Pneumonia
     Dosage: 1 DOSAGE FORM
     Route: 050
     Dates: start: 20180416, end: 20180510
  22. Enterol [Concomitant]
     Indication: Pneumonia
     Dosage: UNK
     Route: 065
     Dates: start: 20180416, end: 20180510
  23. PIPERACILLIN [Concomitant]
     Active Substance: PIPERACILLIN
     Indication: Pneumonia
     Dosage: UNK
     Route: 042
     Dates: start: 20180416, end: 20180510
  24. CALCIUM CHLORIDE\MAGNESIUM CHLORIDE\POTASSIUM CHLORIDE\SODIUM ACETATE\ [Concomitant]
     Active Substance: CALCIUM CHLORIDE\MAGNESIUM CHLORIDE\POTASSIUM CHLORIDE\SODIUM ACETATE\SODIUM CHLORIDE\SODIUM CITRATE
     Indication: Pneumonia
     Dosage: UNK
     Route: 042
     Dates: start: 20180416, end: 20180510
  25. BENODIL [Concomitant]
     Indication: Pneumonia
     Dosage: UNK
     Route: 050
     Dates: start: 20180416, end: 20180510
  26. MAGNESIUM SULFATE, UNSPECIFIED FORM [Concomitant]
     Active Substance: MAGNESIUM SULFATE, UNSPECIFIED FORM
     Indication: Pneumonia
     Dosage: UNK
     Route: 065
     Dates: start: 20180416, end: 20180510
  27. FLEXBUMIN [Concomitant]
     Active Substance: ALBUMIN HUMAN
     Indication: Pneumonia
     Dosage: UNK
     Route: 042
     Dates: start: 20180416, end: 20180510
  28. POTASSIUM CHLORIDE [Concomitant]
     Active Substance: POTASSIUM CHLORIDE
     Indication: Pneumonia
     Dosage: UNK
     Route: 042
     Dates: start: 20180416, end: 20180510

REACTIONS (5)
  - Chills [Recovered/Resolved]
  - Tachycardia [Recovered/Resolved]
  - Blood pressure increased [Recovered/Resolved]
  - Myalgia [Recovered/Resolved]
  - Pyrexia [Recovered/Resolved]

NARRATIVE: CASE EVENT DATE: 20180509
